FAERS Safety Report 12851000 (Version 2)
Quarter: 2016Q4

REPORT INFORMATION
  Report Type: Report from Study
  Country: US (occurrence: US)
  Receive Date: 20161017
  Receipt Date: 20161021
  Transmission Date: 20170207
  Serious: Yes (Hospitalization, Other)
  Sender: FDA-Public Use
  Company Number: US-ACTELION-A-NJ2016-133968

PATIENT
  Age: 54 Year
  Sex: Female

DRUGS (14)
  1. SPIRONOLACTONE. [Concomitant]
     Active Substance: SPIRONOLACTONE
  2. KLOR-CON [Concomitant]
     Active Substance: POTASSIUM CHLORIDE
  3. FUROSEMIDE. [Concomitant]
     Active Substance: FUROSEMIDE
  4. BOSUTINIB [Concomitant]
     Active Substance: BOSUTINIB
     Dosage: UNK
     Dates: start: 20160324
  5. COUMADIN [Concomitant]
     Active Substance: WARFARIN SODIUM
  6. TORSEMIDE. [Concomitant]
     Active Substance: TORSEMIDE
  7. MIRALAX [Concomitant]
     Active Substance: POLYETHYLENE GLYCOL 3350
  8. MUPIROCIN. [Concomitant]
     Active Substance: MUPIROCIN
  9. ALBUTEROL SULFATE. [Concomitant]
     Active Substance: ALBUTEROL SULFATE
  10. ADCIRCA [Concomitant]
     Active Substance: TADALAFIL
  11. SIMVASTATIN. [Concomitant]
     Active Substance: SIMVASTATIN
  12. OPSUMIT [Suspect]
     Active Substance: MACITENTAN
     Indication: PULMONARY ARTERIAL HYPERTENSION
     Dosage: 10 MG, QD
     Route: 048
     Dates: start: 20160106
  13. DOCUSATE [Concomitant]
     Active Substance: DOCUSATE
  14. BOSULIF [Concomitant]
     Active Substance: BOSUTINIB MONOHYDRATE
     Dosage: UNK
     Dates: start: 20160324

REACTIONS (15)
  - Chronic myeloid leukaemia [Not Recovered/Not Resolved]
  - Empyema [Recovered/Resolved]
  - Chest pain [Recovered/Resolved]
  - Anaemia [Not Recovered/Not Resolved]
  - Transfusion [Not Recovered/Not Resolved]
  - Pyrexia [Recovered/Resolved]
  - Occult blood [Not Recovered/Not Resolved]
  - Dyspnoea [Recovered/Resolved]
  - Oedema peripheral [Not Recovered/Not Resolved]
  - Lung disorder [Recovered/Resolved]
  - Flank pain [Recovered/Resolved]
  - Thoracic cavity drainage [Recovered/Resolved]
  - Pleural infection [Not Recovered/Not Resolved]
  - Pleural effusion [Recovered/Resolved]
  - Haemoglobin decreased [Not Recovered/Not Resolved]

NARRATIVE: CASE EVENT DATE: 20160208
